FAERS Safety Report 5507214-8 (Version None)
Quarter: 2007Q4

REPORT INFORMATION
  Report Type: 
  Country: None (occurrence: None)
  Receive Date: 20071102
  Receipt Date: 20071019
  Transmission Date: 20080405
  Serious: Yes (Other)
  Sender: FDA-Public Use
  Company Number: 07-002137

PATIENT
  Age: 40 Year
  Sex: Female
  Weight: 76.6 kg

DRUGS (4)
  1. FEMCON FE [Suspect]
     Indication: CONTRACEPTION
     Dosage: 0.4MG/35MCG, QD, ORAL
     Route: 048
     Dates: start: 20070601, end: 20070901
  2. FEMCON FE [Suspect]
     Indication: OVARIAN CYST
     Dosage: 0.4MG/35MCG, QD, ORAL
     Route: 048
     Dates: start: 20070601, end: 20070901
  3. LOESTRIN 24 FE [Suspect]
     Indication: CONTRACEPTION
     Dosage: 20/1000 UG, QD, ORAL
     Route: 048
     Dates: start: 20070921
  4. LOESTRIN 24 FE [Suspect]
     Indication: OVARIAN CYST
     Dosage: 20/1000 UG, QD, ORAL
     Route: 048
     Dates: start: 20070921

REACTIONS (3)
  - ACNE [None]
  - AMENORRHOEA [None]
  - OVARIAN CYST RUPTURED [None]
